FAERS Safety Report 25688497 (Version 1)
Quarter: 2025Q3

REPORT INFORMATION
  Report Type: Spontaneous
  Country: NZ (occurrence: NZ)
  Receive Date: 20250818
  Receipt Date: 20250818
  Transmission Date: 20251020
  Serious: Yes (Other)
  Sender: Unknown Manufacturer
  Company Number: NZ-ASTRAZENECA-202508OCE000783NZ

PATIENT

DRUGS (1)
  1. METOPROLOL SUCCINATE [Suspect]
     Active Substance: METOPROLOL SUCCINATE
     Route: 065
     Dates: start: 202504

REACTIONS (3)
  - Chills [Unknown]
  - Bowel movement irregularity [Unknown]
  - Vision blurred [Unknown]

NARRATIVE: CASE EVENT DATE: 20250401
